FAERS Safety Report 16344277 (Version 1)
Quarter: 2019Q2

REPORT INFORMATION
  Report Type: Spontaneous
  Country: GB (occurrence: GB)
  Receive Date: 20190522
  Receipt Date: 20190522
  Transmission Date: 20190711
  Serious: Yes (Other)
  Sender: FDA-Public Use
  Company Number: GB-PFIZER INC-2019214289

PATIENT
  Age: 55 Year
  Sex: Female
  Weight: 64.86 kg

DRUGS (5)
  1. OVESTIN [Concomitant]
     Active Substance: ESTRIOL
     Dosage: UNK
  2. TOSTRAN [Concomitant]
     Active Substance: TESTOSTERONE
     Dosage: UNK
  3. SANDRENA [Concomitant]
     Active Substance: ESTRADIOL
     Dosage: UNK
  4. UTROGESTAN [Concomitant]
     Active Substance: PROGESTERONE
     Dosage: UNK
  5. PANTOPRAZOLE [Suspect]
     Active Substance: PANTOPRAZOLE
     Indication: INFECTION
     Dosage: 40 MG, UNK
     Route: 048
     Dates: start: 20190407, end: 20190420

REACTIONS (9)
  - Dyspepsia [Unknown]
  - Retching [Unknown]
  - Nausea [Unknown]
  - Abdominal pain [Unknown]
  - Arthralgia [Recovered/Resolved]
  - Feeling hot [Unknown]
  - Dizziness [Not Recovered/Not Resolved]
  - Body temperature decreased [Recovered/Resolved]
  - Chills [Recovered/Resolved]

NARRATIVE: CASE EVENT DATE: 20190418
